FAERS Safety Report 15735666 (Version 1)
Quarter: 2018Q4

REPORT INFORMATION
  Report Type: Spontaneous
  Country: US (occurrence: US)
  Receive Date: 20181218
  Receipt Date: 20181218
  Transmission Date: 20190205
  Serious: No
  Sender: FDA-Public Use
  Company Number: US-B.I. PHARMACEUTICALS,INC./RIDGEFIELD-2018-BI-059555

PATIENT
  Age: 73 Year
  Sex: Male

DRUGS (2)
  1. JARDIANCE [Suspect]
     Active Substance: EMPAGLIFLOZIN
     Dosage: ;  FORM STRENGTH: 25MG; FORMULATION: TABLET?  YES ?DRUG WITHDRAWN
     Route: 048
     Dates: start: 201811, end: 20181208
  2. JARDIANCE [Suspect]
     Active Substance: EMPAGLIFLOZIN
     Indication: DIABETES MELLITUS
     Dosage: ;  FORM STRENGTH: 10 MG; ACTION(S) TAKEN WITH PRODUCT: DOSE INCREASED
     Route: 048
     Dates: start: 201811, end: 201811

REACTIONS (4)
  - Joint swelling [Unknown]
  - Arthralgia [Not Recovered/Not Resolved]
  - Arthralgia [Recovered/Resolved]
  - Blood creatinine increased [Not Recovered/Not Resolved]

NARRATIVE: CASE EVENT DATE: 20181207
